FAERS Safety Report 8701529 (Version 2)
Quarter: 2013Q1

REPORT INFORMATION
  Report Type: Report from Study
  Country: AU (occurrence: AU)
  Receive Date: 20120803
  Receipt Date: 20130207
  Transmission Date: 20140127
  Serious: Yes (Other)
  Sender: FDA-Public Use
  Company Number: AU-BRISTOL-MYERS SQUIBB COMPANY-16802951

PATIENT
  Age: 44 Year
  Sex: Female

DRUGS (3)
  1. ORENCIA [Suspect]
     Indication: RHEUMATOID ARTHRITIS
     Dosage: DUE ON 13JUL12?SC NOW
     Route: 042
     Dates: start: 20090318
  2. FLUOXETINE [Concomitant]
     Route: 048
  3. FLUVOXAMINE [Concomitant]
     Route: 048

REACTIONS (2)
  - Intentional self-injury [Unknown]
  - Thermal burn [Unknown]
